FAERS Safety Report 5011789-5 (Version None)
Quarter: 2006Q2

REPORT INFORMATION
  Report Type: 
  Country: None (occurrence: None)
  Receive Date: 20060526
  Receipt Date: 20060518
  Transmission Date: 20061013
  Serious: Yes (Other)
  Sender: FDA-Public Use
  Company Number: US-JNJFOC-20051101926

PATIENT

DRUGS (27)
  1. REMICADE [Suspect]
  2. REMICADE [Suspect]
  3. REMICADE [Suspect]
  4. REMICADE [Suspect]
  5. REMICADE [Suspect]
  6. REMICADE [Suspect]
  7. REMICADE [Suspect]
  8. REMICADE [Suspect]
  9. REMICADE [Suspect]
  10. REMICADE [Suspect]
  11. REMICADE [Suspect]
  12. REMICADE [Suspect]
  13. REMICADE [Suspect]
  14. REMICADE [Suspect]
  15. REMICADE [Suspect]
  16. REMICADE [Suspect]
  17. REMICADE [Suspect]
  18. REMICADE [Suspect]
  19. REMICADE [Suspect]
  20. REMICADE [Suspect]
  21. REMICADE [Suspect]
  22. REMICADE [Suspect]
  23. REMICADE [Suspect]
  24. REMICADE [Suspect]
     Indication: CROHN'S DISEASE
  25. MESALAMINE [Concomitant]
     Indication: CROHN'S DISEASE
  26. NARCOTIC ANALGESICS [Concomitant]
     Indication: CROHN'S DISEASE
  27. PREDNISONE TAB [Concomitant]
     Indication: CROHN'S DISEASE

REACTIONS (1)
  - RESPIRATORY DISORDER NEONATAL [None]
